FAERS Safety Report 20785794 (Version 1)
Quarter: 2022Q2

REPORT INFORMATION
  Report Type: Spontaneous
  Country: US (occurrence: None)
  Receive Date: 20220504
  Receipt Date: 20220504
  Transmission Date: 20220721
  Serious: No
  Sender: FDA-Public Use
  Company Number: US-ROCHE-2884084

PATIENT
  Sex: Female

DRUGS (1)
  1. OCREVUS [Suspect]
     Active Substance: OCRELIZUMAB
     Indication: Multiple sclerosis
     Dosage: HER LAST INFUSION WITH OCRELIZUMAB WAS IN THE JAN/2021 OR FEB/2021 TIMEFRAME
     Route: 065

REACTIONS (1)
  - Maternal exposure during pregnancy [Unknown]
